FAERS Safety Report 4801637-8 (Version None)
Quarter: 2005Q4

REPORT INFORMATION
  Report Type: 
  Country: None (occurrence: None)
  Receive Date: 20051018
  Receipt Date: 20051010
  Transmission Date: 20060501
  Serious: Yes (Death)
  Sender: FDA-Public Use
  Company Number: CO-SANOFI-SYNTHELABO-A01200506894

PATIENT
  Sex: Male

DRUGS (8)
  1. PLAVIX [Suspect]
     Indication: STENT PLACEMENT
     Route: 048
     Dates: start: 20050801
  2. PLAVIX [Suspect]
     Indication: CORONARY ARTERY DISEASE
     Route: 048
     Dates: start: 20050801
  3. WARFARIN [Suspect]
     Indication: ACUTE MYOCARDIAL INFARCTION
     Route: 048
     Dates: start: 20050801
  4. WARFARIN [Suspect]
     Indication: CORONARY ARTERY DISEASE
     Route: 048
     Dates: start: 20050801
  5. ASPIRINA [Suspect]
     Indication: ACUTE MYOCARDIAL INFARCTION
     Route: 048
  6. ASPIRINA [Suspect]
     Indication: CORONARY ARTERY DISEASE
     Route: 048
  7. LOVASTATIN [Concomitant]
     Indication: DYSLIPIDAEMIA
     Route: 065
     Dates: start: 20050601
  8. METOPROLOL SUCCINATE [Concomitant]
     Indication: HYPERTENSION
     Route: 065
     Dates: start: 20050601

REACTIONS (1)
  - HAEMORRHAGIC STROKE [None]
